FAERS Safety Report 6134298-9 (Version None)
Quarter: 2009Q1

REPORT INFORMATION
  Report Type: 
  Country: None (occurrence: None)
  Receive Date: 20090325
  Receipt Date: 20090310
  Transmission Date: 20090719
  Serious: Yes (Hospitalization)
  Sender: FDA-Public Use
  Company Number: 2009S1004231

PATIENT
  Age: 16 Year
  Sex: Male

DRUGS (2)
  1. AZATHIOPRINE [Suspect]
     Indication: CROHN'S DISEASE
     Dosage: 2 MG/KG;UNKNOWN;DAILY
     Dates: start: 20070514
  2. BUDESONIDE [Concomitant]

REACTIONS (3)
  - ANKYLOSING SPONDYLITIS [None]
  - DRUG HYPERSENSITIVITY [None]
  - TYPE III IMMUNE COMPLEX MEDIATED REACTION [None]
